FAERS Safety Report 10160606 (Version 1)
Quarter: 2014Q2

REPORT INFORMATION
  Report Type: Spontaneous
  Country: US (occurrence: None)
  Receive Date: 20140507
  Receipt Date: 20140507
  Transmission Date: 20141212
  Serious: Yes (Disabling, Other)
  Sender: FDA-Public Use
  Company Number: None

PATIENT
  Age: 50 Year
  Sex: Female
  Weight: 121.11 kg

DRUGS (12)
  1. GAVILYTE-G [Suspect]
     Indication: LAXATIVE SUPPORTIVE CARE
     Dosage: 4,000 ML, 8 OZ EVERY 10-15 MINUTES UNTIL GONE
     Route: 048
     Dates: start: 20140413, end: 20140413
  2. GAVILYTE-G [Suspect]
     Indication: BOWEL PREPARATION
     Dosage: 4,000 ML, 8 OZ EVERY 10-15 MINUTES UNTIL GONE
     Route: 048
     Dates: start: 20140413, end: 20140413
  3. GAVILYTE-G [Suspect]
     Indication: COLONOSCOPY
     Dosage: 4,000 ML, 8 OZ EVERY 10-15 MINUTES UNTIL GONE
     Route: 048
     Dates: start: 20140413, end: 20140413
  4. RESPERDAL [Concomitant]
  5. LITHIUM CARBONATE [Concomitant]
  6. DIPHENHYDRAMINE [Concomitant]
  7. LEVOTHYROXINE SODIUM [Concomitant]
  8. ESCITALOPRAM OXALATE [Concomitant]
  9. GAVILYTE-G [Concomitant]
  10. ADULT MULTIVITAMIN/MINERAL WOMAN^S ADVANCED [Concomitant]
  11. L-LYSINE [Concomitant]
  12. PSLLIUM FIBER SUPPLEMENT [Concomitant]

REACTIONS (3)
  - Vomiting [None]
  - Nausea [None]
  - Asthenia [None]
